FAERS Safety Report 19407052 (Version 2)
Quarter: 2021Q3

REPORT INFORMATION
  Report Type: Spontaneous
  Country: US (occurrence: US)
  Receive Date: 20210611
  Receipt Date: 20210729
  Transmission Date: 20211014
  Serious: No
  Sender: FDA-Public Use
  Company Number: US-PFIZER INC-2021538028

PATIENT
  Age: 8 Year
  Sex: Male
  Weight: 19.05 kg

DRUGS (1)
  1. GENOTROPIN [Suspect]
     Active Substance: SOMATROPIN
     Indication: GROWTH HORMONE DEFICIENCY
     Dosage: 0.8 MG, 1X/DAY [INJECTION NIGHTLY (ALTERNATING BUTT CHEEKS, OR IN THE TOP OF LEGS)]

REACTIONS (5)
  - Drug dose omission by device [Unknown]
  - Device information output issue [Unknown]
  - Device use issue [Unknown]
  - Device physical property issue [Unknown]
  - Device use error [Unknown]

NARRATIVE: CASE EVENT DATE: 20210512
